FAERS Safety Report 14624849 (Version 1)
Quarter: 2018Q1

REPORT INFORMATION
  Report Type: Spontaneous
  Country: US (occurrence: US)
  Receive Date: 20180312
  Receipt Date: 20180312
  Transmission Date: 20180509
  Serious: No
  Sender: FDA-Public Use
  Company Number: US-PFIZER INC-2018100029

PATIENT
  Age: 58 Year
  Sex: Female
  Weight: 57.15 kg

DRUGS (1)
  1. FLECTOR [Suspect]
     Active Substance: DICLOFENAC EPOLAMINE
     Indication: BACK PAIN
     Dosage: 2 DF, AS NEEDED (1 PATCH AS NEEDED TO EACH SIDE OF THE NECK FOR 12 HOURS OVERNIGHT)

REACTIONS (5)
  - Application site irritation [Unknown]
  - Application site pain [Unknown]
  - Application site pruritus [Not Recovered/Not Resolved]
  - Application site rash [Not Recovered/Not Resolved]
  - Product use issue [Unknown]

NARRATIVE: CASE EVENT DATE: 20180306
